FAERS Safety Report 7753669-8 (Version None)
Quarter: 2011Q3

REPORT INFORMATION
  Report Type: 
  Country: None (occurrence: None)
  Receive Date: 20110915
  Receipt Date: 20110915
  Transmission Date: 20111222
  Serious: Yes (Other)
  Sender: FDA-Public Use
  Company Number: None

PATIENT
  Age: 51 Year
  Sex: Male
  Weight: 60.327 kg

DRUGS (11)
  1. ASPIRIN [Concomitant]
  2. LOVAZA [Concomitant]
  3. SYNTHROID [Concomitant]
  4. MAGNESIUM [Concomitant]
  5. XYZOL [Concomitant]
  6. POTASIUM CHLORIDE [Concomitant]
  7. CYMBALTA [Suspect]
     Indication: PAIN
     Dosage: 20MG
     Route: 048
     Dates: start: 20101114, end: 20101223
  8. CYMBALTA [Suspect]
     Indication: ANXIETY
     Dosage: 20MG
     Route: 048
     Dates: start: 20101114, end: 20101223
  9. CLONAZEPAM [Concomitant]
  10. MULTI-VITAMIN [Concomitant]
  11. PRAVASTATIN [Concomitant]

REACTIONS (1)
  - ANGER [None]
